FAERS Safety Report 9135154 (Version 2)
Quarter: 2013Q1

REPORT INFORMATION
  Report Type: Spontaneous
  Country: BR (occurrence: BR)
  Receive Date: 20130304
  Receipt Date: 20130327
  Transmission Date: 20140127
  Serious: Yes (Other)
  Sender: FDA-Public Use
  Company Number: PHHY2013BR017763

PATIENT
  Age: 64 Year
  Sex: Female
  Weight: 120 kg

DRUGS (5)
  1. DIOVAN HCT [Suspect]
     Indication: HYPERTENSION
     Dosage: 1 DF (160 MG VALS/ 12.5 MG HCT), QD
     Route: 048
  2. DIOVAN HCT [Suspect]
     Dosage: 1 DF (160MG VALS/ 12.5MG HCT), QD
  3. SLOW K [Suspect]
     Indication: MUSCLE SPASMS
     Dosage: 1 DF (600 MG), WHEB PRESENTS CRAMPS
     Route: 048
  4. CITONEURIN                         /00499701/ [Concomitant]
     Indication: VITAMIN SUPPLEMENTATION
     Dosage: 1 APPLICATION,EVERY 15 DAYS
     Route: 030
     Dates: start: 2009
  5. SYNTHROID [Concomitant]
     Indication: HYPOTHYROIDISM
     Dosage: 75 MCG,DAILY
     Route: 048

REACTIONS (3)
  - Blood pressure increased [Recovering/Resolving]
  - Tachycardia [Recovered/Resolved]
  - Muscle spasms [Not Recovered/Not Resolved]
